FAERS Safety Report 12632839 (Version 2)
Quarter: 2016Q3

REPORT INFORMATION
  Report Type: Spontaneous
  Country: US (occurrence: US)
  Receive Date: 20160808
  Receipt Date: 20160808
  Transmission Date: 20161109
  Serious: No
  Sender: FDA-Public Use
  Company Number: US-BEH-2015057196

PATIENT
  Sex: Female
  Weight: 73 kg

DRUGS (18)
  1. DIPHENHYDRAMINE. [Concomitant]
     Active Substance: DIPHENHYDRAMINE
  2. BIAXIN [Concomitant]
     Active Substance: CLARITHROMYCIN
  3. EPIPEN [Concomitant]
     Active Substance: EPINEPHRINE
  4. PREDNISONE. [Concomitant]
     Active Substance: PREDNISONE
  5. IPRATROPIUM-ALBUTEROL [Concomitant]
     Active Substance: ALBUTEROL\IPRATROPIUM
  6. PERFOROMIST [Concomitant]
     Active Substance: FORMOTEROL FUMARATE DIHYDRATE
  7. ALLEGRA [Concomitant]
     Active Substance: FEXOFENADINE HYDROCHLORIDE
  8. GABAPENTIN. [Concomitant]
     Active Substance: GABAPENTIN
  9. HIZENTRA [Suspect]
     Active Substance: HUMAN IMMUNOGLOBULIN G
     Route: 058
  10. HIZENTRA [Suspect]
     Active Substance: HUMAN IMMUNOGLOBULIN G
     Route: 058
  11. NORVASC [Concomitant]
     Active Substance: AMLODIPINE BESYLATE
  12. CALCIUM 500+D [Concomitant]
     Active Substance: CALCIUM\VITAMIN D
  13. HIZENTRA [Suspect]
     Active Substance: HUMAN IMMUNOGLOBULIN G
     Indication: IMMUNODEFICIENCY COMMON VARIABLE
     Route: 058
  14. ASTELIN [Concomitant]
     Active Substance: AZELASTINE HYDROCHLORIDE
  15. MUCINEX [Concomitant]
     Active Substance: GUAIFENESIN
  16. BENTYL [Concomitant]
     Active Substance: DICYCLOMINE HYDROCHLORIDE
  17. BUDESONIDE. [Concomitant]
     Active Substance: BUDESONIDE
  18. OMEPRAZOLE. [Concomitant]
     Active Substance: OMEPRAZOLE

REACTIONS (1)
  - Administration site erythema [Recovered/Resolved]
